FAERS Safety Report 4398826-6 (Version None)
Quarter: 2004Q3

REPORT INFORMATION
  Report Type: 
  Country: None (occurrence: None)
  Receive Date: 20040712
  Receipt Date: 20040702
  Transmission Date: 20050211
  Serious: Yes (Death, Hospitalization)
  Sender: FDA-Public Use
  Company Number: US-2004-028202

PATIENT
  Age: 24 Year
  Sex: Female

DRUGS (1)
  1. LEVLEN 28 [Suspect]
     Indication: ORAL CONTRACEPTION
     Dosage: 1 TAB(S), 1X/DAY, ORAL
     Route: 048
     Dates: start: 20040301, end: 20040609

REACTIONS (1)
  - CEREBRAL THROMBOSIS [None]
